FAERS Safety Report 5560402-7 (Version None)
Quarter: 2007Q4

REPORT INFORMATION
  Report Type: 
  Country: None (occurrence: None)
  Receive Date: 20071214
  Receipt Date: 20071101
  Transmission Date: 20080405
  Serious: No
  Sender: FDA-Public Use
  Company Number: US-ABBOTT-07P-163-0423904-00

PATIENT
  Sex: Male
  Weight: 52.664 kg

DRUGS (4)
  1. HUMIRA [Suspect]
     Indication: CROHN'S DISEASE
     Dosage: 160MG EVERY TWO WEEKS, THEN 80MG X1, AND THEN 40MG EVERY TWO WEEKS
     Route: 058
     Dates: start: 20070621
  2. AZATHIOPRINE [Suspect]
     Indication: CROHN'S DISEASE
     Route: 048
     Dates: end: 20070801
  3. VENLAFAXIINE HCL [Suspect]
     Indication: DEPRESSION
     Route: 048
     Dates: start: 20071019, end: 20071022
  4. BUPROPION HCL [Suspect]
     Indication: DEPRESSION
     Route: 048
     Dates: start: 20071105, end: 20071105

REACTIONS (7)
  - BURNING SENSATION [None]
  - HAEMORRHAGIC DIATHESIS [None]
  - INCREASED TENDENCY TO BRUISE [None]
  - LIBIDO DECREASED [None]
  - RASH [None]
  - THROAT IRRITATION [None]
  - VOMITING [None]
